FAERS Safety Report 4949810-2 (Version None)
Quarter: 2006Q1

REPORT INFORMATION
  Report Type: 
  Country: None (occurrence: None)
  Receive Date: 20060315
  Receipt Date: 20060310
  Transmission Date: 20060701
  Serious: Yes (Disabling)
  Sender: FDA-Public Use
  Company Number: HQWYE892117FEB06

PATIENT
  Age: 48 Year
  Sex: Female

DRUGS (2)
  1. EFFEXOR XR [Suspect]
     Indication: DEPRESSION
     Dosage: 37.5 MG 1X PER 1 DAY; ORAL; 75 MG 1X PER 1 DAY; ORAL
     Route: 048
     Dates: start: 20050815, end: 20060131
  2. EFFEXOR XR [Suspect]
     Indication: DEPRESSION
     Dosage: 37.5 MG 1X PER 1 DAY; ORAL; 75 MG 1X PER 1 DAY; ORAL
     Route: 048
     Dates: start: 20060201

REACTIONS (3)
  - FIBROMYALGIA [None]
  - IMPAIRED WORK ABILITY [None]
  - TENDONITIS [None]
